FAERS Safety Report 9369371 (Version 2)
Quarter: 2013Q3

REPORT INFORMATION
  Report Type: Spontaneous
  Country: DE (occurrence: DE)
  Receive Date: 20130626
  Receipt Date: 20130703
  Transmission Date: 20140515
  Serious: Yes (Other)
  Sender: FDA-Public Use
  Company Number: DE-JNJFOC-20130613731

PATIENT
  Age: 69 Year
  Sex: Male
  Weight: 87.08 kg

DRUGS (5)
  1. XARELTO [Suspect]
     Indication: ACTIVATED PROTEIN C RESISTANCE
     Route: 048
  2. XARELTO [Suspect]
     Indication: ACTIVATED PROTEIN C RESISTANCE
     Route: 048
     Dates: start: 201301
  3. XARELTO [Suspect]
     Indication: THROMBOSIS
     Route: 048
  4. XARELTO [Suspect]
     Indication: THROMBOSIS
     Route: 048
     Dates: start: 201301
  5. KINZALKOMB [Concomitant]
     Route: 065

REACTIONS (1)
  - Post procedural haemorrhage [Recovered/Resolved]
